FAERS Safety Report 8950955 (Version 1)
Quarter: 2012Q4

REPORT INFORMATION
  Report Type: 
  Country: GB (occurrence: GB)
  Receive Date: 20121207
  Receipt Date: 20121207
  Transmission Date: 20130627
  Serious: Yes (Hospitalization)
  Sender: FDA-Public Use
  Company Number: GB-WATSON-2012-21344

PATIENT
  Age: 61 Year
  Sex: Male

DRUGS (36)
  1. RAMIPRIL (UNKNOWN) [Suspect]
     Indication: PRODUCT USED FOR UNKNOWN INDICATION
     Dosage: UNK
     Route: 048
     Dates: start: 20101103, end: 20111026
  2. RAMIPRIL (UNKNOWN) [Suspect]
     Dosage: UNK
     Route: 048
     Dates: start: 20111026, end: 20120705
  3. RAMIPRIL (UNKNOWN) [Suspect]
     Dosage: UNK
     Route: 048
     Dates: start: 20111026, end: 20120705
  4. RAMIPRIL (UNKNOWN) [Suspect]
     Dosage: UNK
     Route: 048
     Dates: start: 20120801
  5. RAMIPRIL (UNKNOWN) [Suspect]
     Dosage: 2.5 mg, bid
     Route: 048
     Dates: start: 20120706, end: 20120727
  6. BURINEX [Suspect]
     Indication: PRODUCT USED FOR UNKNOWN INDICATION
     Dosage: 2 mg, unknown
     Route: 048
     Dates: start: 20101102, end: 20110309
  7. BURINEX [Suspect]
     Dosage: 2 mg, unknown
     Route: 048
     Dates: start: 20120604, end: 20120716
  8. BURINEX [Suspect]
     Dosage: 1 mg, unknown
     Route: 048
     Dates: start: 20120716, end: 20120727
  9. BURINEX [Suspect]
     Dosage: 2 mg, unknown
     Route: 048
     Dates: start: 20120730
  10. BURINEX [Suspect]
     Dosage: UNK
  11. LEVEMIR [Concomitant]
     Indication: PRODUCT USED FOR UNKNOWN INDICATION
     Dosage: 30 IU, unknown
     Route: 058
     Dates: start: 20020408, end: 20111212
  12. LEVEMIR [Concomitant]
     Dosage: 10 IU, unknown
     Route: 058
     Dates: start: 20120815
  13. LEVEMIR [Concomitant]
     Dosage: 31 IU UNK,
     Route: 058
     Dates: start: 20111212, end: 20120602
  14. DIAZEPAM [Concomitant]
     Indication: PRODUCT USED FOR UNKNOWN INDICATION
     Dosage: UNK,
     Route: 048
     Dates: start: 20120628
  15. FUROSEMIDE [Concomitant]
     Indication: PRODUCT USED FOR UNKNOWN INDICATION
     Dosage: UNK,
     Route: 048
     Dates: start: 20101217, end: 20110309
  16. FUROSEMIDE [Concomitant]
     Dosage: UNK
     Route: 048
     Dates: start: 20110309, end: 20120604
  17. FUROSEMIDE [Concomitant]
     Dosage: UNK,
     Route: 048
     Dates: start: 20110309, end: 20110705
  18. BENDROFLUMETHIAZIDE [Concomitant]
     Indication: PRODUCT USED FOR UNKNOWN INDICATION
     Dosage: UNK,
     Route: 048
     Dates: start: 20101104, end: 20110516
  19. BENDROFLUMETHIAZIDE [Concomitant]
     Dosage: UNK,
     Route: 048
     Dates: start: 20111206, end: 20111212
  20. BENDROFLUMETHIAZIDE [Concomitant]
     Dosage: UNK
     Route: 048
     Dates: start: 20111212, end: 20120604
  21. AMILORIDE [Concomitant]
     Indication: PRODUCT USED FOR UNKNOWN INDICATION
     Dosage: UNK
     Route: 048
     Dates: start: 20110208, end: 20110222
  22. NORTRIPTYLINE HYDROCHLORIDE [Concomitant]
     Indication: PRODUCT USED FOR UNKNOWN INDICATION
     Dosage: UNK
     Route: 048
     Dates: start: 20110117
  23. PARACETAMOL [Concomitant]
     Indication: PRODUCT USED FOR UNKNOWN INDICATION
     Dosage: as necessary
     Route: 048
     Dates: start: 20110324
  24. EPLERENONE [Concomitant]
     Indication: PRODUCT USED FOR UNKNOWN INDICATION
     Dosage: UNK
     Route: 048
     Dates: start: 20120801
  25. PREGABALIN [Concomitant]
     Indication: PRODUCT USED FOR UNKNOWN INDICATION
     Dosage: 50 mg, bid
     Route: 048
     Dates: start: 20120727
  26. FERROUS SULPHATE                   /00023503/ [Concomitant]
     Indication: PRODUCT USED FOR UNKNOWN INDICATION
     Dosage: 200 mg, tid
     Route: 048
     Dates: start: 20120727
  27. FUSIDIC ACID [Concomitant]
     Indication: PRODUCT USED FOR UNKNOWN INDICATION
     Dosage: 500 mg, tid
     Route: 048
     Dates: start: 20120405, end: 20120501
  28. CYCLIZINE [Concomitant]
     Indication: PRODUCT USED FOR UNKNOWN INDICATION
     Dosage: 50 mg, tid
     Route: 048
     Dates: start: 20120405, end: 20120501
  29. ASPIRIN [Concomitant]
     Indication: PRODUCT USED FOR UNKNOWN INDICATION
     Dosage: 75 mg, daily
     Route: 048
     Dates: start: 20030814
  30. CLOPIDOGREL [Concomitant]
     Indication: PRODUCT USED FOR UNKNOWN INDICATION
     Dosage: UNK, unknown
     Route: 048
     Dates: start: 20001101
  31. INSPRA                             /01362602/ [Concomitant]
     Indication: PRODUCT USED FOR UNKNOWN INDICATION
     Dosage: UNK
     Route: 048
     Dates: start: 20101115
  32. ROSUVASTATIN [Concomitant]
     Indication: PRODUCT USED FOR UNKNOWN INDICATION
     Dosage: UNK,
     Route: 048
     Dates: start: 20001102
  33. NOVORAPID [Concomitant]
     Indication: PRODUCT USED FOR UNKNOWN INDICATION
     Dosage: UNK
     Route: 065
     Dates: start: 20020418, end: 20111212
  34. NOVORAPID [Concomitant]
     Dosage: UNK,
     Route: 058
     Dates: start: 20111212, end: 20120602
  35. LANSOPRAZOLE [Concomitant]
     Indication: PRODUCT USED FOR UNKNOWN INDICATION
     Dosage: UNK
     Route: 048
     Dates: start: 20101101
  36. BECLOMETHASONE                     /00212602/ [Concomitant]
     Indication: PRODUCT USED FOR UNKNOWN INDICATION
     Dosage: UNK
     Route: 055

REACTIONS (1)
  - Fall [Recovered/Resolved]
